FAERS Safety Report 17761299 (Version 1)
Quarter: 2020Q2

REPORT INFORMATION
  Report Type: Spontaneous
  Country: CH (occurrence: CH)
  Receive Date: 20200508
  Receipt Date: 20200508
  Transmission Date: 20200714
  Serious: Yes (Disabling)
  Sender: FDA-Public Use
  Company Number: CH-ROCHE-2592131

PATIENT
  Age: 54 Year
  Sex: Male

DRUGS (7)
  1. PREDNISONE. [Concomitant]
     Active Substance: PREDNISONE
     Indication: MESENTERIC PANNICULITIS
  2. ENDOXAN [CYCLOPHOSPHAMIDE] [Concomitant]
     Active Substance: CYCLOPHOSPHAMIDE
     Indication: MESENTERIC PANNICULITIS
     Route: 065
     Dates: start: 201901, end: 201902
  3. METHOTREXATE. [Concomitant]
     Active Substance: METHOTREXATE
     Route: 065
     Dates: start: 20200401
  4. TAMOXIFEN [Concomitant]
     Active Substance: TAMOXIFEN
     Indication: MESENTERIC PANNICULITIS
     Route: 065
     Dates: start: 20150101
  5. REMICADE [Concomitant]
     Active Substance: INFLIXIMAB
     Route: 065
     Dates: start: 20200401
  6. MYCOPHENOLATE MOFETIL. [Suspect]
     Active Substance: MYCOPHENOLATE MOFETIL
     Indication: MESENTERIC PANNICULITIS
     Route: 048
     Dates: start: 2017, end: 2019
  7. AZATHIOPRIN [Concomitant]
     Active Substance: AZATHIOPRINE
     Indication: MESENTERIC PANNICULITIS
     Route: 065
     Dates: start: 20160101

REACTIONS (1)
  - Arthritis [Not Recovered/Not Resolved]

NARRATIVE: CASE EVENT DATE: 2020
